FAERS Safety Report 7607229-X (Version None)
Quarter: 2011Q3

REPORT INFORMATION
  Report Type: 
  Country: None (occurrence: None)
  Receive Date: 20110713
  Receipt Date: 20110706
  Transmission Date: 20111222
  Serious: Yes (Other)
  Sender: FDA-Public Use
  Company Number: CA-PFIZER INC-2011139885

PATIENT
  Age: 69 Year
  Sex: Male

DRUGS (11)
  1. XALATAN [Suspect]
     Indication: GLAUCOMA
     Dosage: 1 GTT, 1X/DAY AT BEDTIME
     Route: 047
  2. NOVOLIN GE TORONTO [Concomitant]
     Dosage: UNK
  3. EZETIMIBE [Concomitant]
     Dosage: UNK
  4. PRAVASTATIN [Concomitant]
     Dosage: UNK
  5. RASILEZ [Concomitant]
     Dosage: UNK
  6. BRIMONIDINE [Concomitant]
     Dosage: UNK
  7. COSOPT [Concomitant]
     Dosage: UNK
  8. DOXAZOSIN [Concomitant]
     Dosage: UNK
  9. HUMALOG [Concomitant]
     Indication: VITAMIN SUPPLEMENTATION
     Dosage: UNK
  10. AMLODIPINE [Concomitant]
     Dosage: UNK
  11. PREDNISONE [Concomitant]
     Dosage: UNK

REACTIONS (2)
  - CATARACT OPERATION [None]
  - INTRAOCULAR PRESSURE INCREASED [None]
